FAERS Safety Report 19442537 (Version 1)
Quarter: 2021Q2

REPORT INFORMATION
  Report Type: Spontaneous
  Country: US (occurrence: US)
  Receive Date: 20210619
  Receipt Date: 20210619
  Transmission Date: 20210717
  Serious: Yes (Disabling)
  Sender: FDA-Public Use
  Company Number: None

PATIENT
  Age: 49 Year
  Sex: Female
  Weight: 73.35 kg

DRUGS (1)
  1. AIMOVIG [Suspect]
     Active Substance: ERENUMAB-AOOE
     Indication: MIGRAINE
     Route: 058
     Dates: start: 20180831

REACTIONS (4)
  - Polyp [None]
  - Anorectal sensory loss [None]
  - Gastrointestinal hypomotility [None]
  - Diverticulum [None]

NARRATIVE: CASE EVENT DATE: 20181201
